FAERS Safety Report 9636822 (Version 5)
Quarter: 2014Q1

REPORT INFORMATION
  Report Type: Spontaneous
  Country: US (occurrence: US)
  Receive Date: 20131022
  Receipt Date: 20140114
  Transmission Date: 20141002
  Serious: Yes (Hospitalization)
  Sender: FDA-Public Use
  Company Number: US-BIOGENIDEC-2013BI100265

PATIENT
  Age: 42 Year
  Sex: Female

DRUGS (5)
  1. TYSABRI [Suspect]
     Indication: MULTIPLE SCLEROSIS
     Route: 042
     Dates: start: 20080624
  2. ARIXTRA [Concomitant]
  3. ONDANSETRON [Concomitant]
  4. MORPHINE [Concomitant]
  5. PANTOPRAZOLE [Concomitant]

REACTIONS (11)
  - Pneumonia [Unknown]
  - Brain mass [Unknown]
  - Headache [Unknown]
  - Rash [Recovered/Resolved]
  - Hemiparesis [Not Recovered/Not Resolved]
  - Fatigue [Unknown]
  - Incontinence [Unknown]
  - Grand mal convulsion [Not Recovered/Not Resolved]
  - Convulsion [Recovered/Resolved]
  - Brain abscess [Not Recovered/Not Resolved]
  - Memory impairment [Not Recovered/Not Resolved]
